FAERS Safety Report 7724280-X (Version None)
Quarter: 2011Q3

REPORT INFORMATION
  Report Type: 
  Country: None (occurrence: None)
  Receive Date: 20110829
  Receipt Date: 20110818
  Transmission Date: 20111222
  Serious: Yes (Disabling, Other)
  Sender: FDA-Public Use
  Company Number: ACO_26305_2011

PATIENT
  Age: 56 Year
  Sex: Female
  Weight: 47.1741 kg

DRUGS (8)
  1. VITAMIN D [Concomitant]
  2. SYNTHROID [Concomitant]
  3. NEURONTIN [Concomitant]
  4. AMPYRA [Suspect]
     Indication: GAIT DISTURBANCE
     Dosage: 10 MG, QD, ORAL   10MG, BID, ORAL
     Route: 048
     Dates: start: 20110720, end: 20110813
  5. AMPYRA [Suspect]
     Indication: GAIT DISTURBANCE
     Dosage: 10 MG, QD, ORAL   10MG, BID, ORAL
     Route: 048
     Dates: start: 20110713, end: 20110719
  6. REBIF [Concomitant]
  7. OXYBUTYNIN [Concomitant]
  8. CELEBREX 9CELECOXIB) [Concomitant]

REACTIONS (6)
  - WHITE BLOOD CELL COUNT INCREASED [None]
  - URINARY TRACT INFECTION [None]
  - GAIT DISTURBANCE [None]
  - ABASIA [None]
  - NAUSEA [None]
  - MUSCULAR WEAKNESS [None]
